FAERS Safety Report 7425512-8 (Version None)
Quarter: 2011Q2

REPORT INFORMATION
  Report Type: 
  Country: None (occurrence: None)
  Receive Date: 20110420
  Receipt Date: 20110418
  Transmission Date: 20111010
  Serious: Yes (Hospitalization)
  Sender: FDA-Public Use
  Company Number: AU-PFIZER INC-2011083896

PATIENT
  Age: 34 Year
  Sex: Male

DRUGS (3)
  1. ZOLOFT [Suspect]
     Dosage: UNK
     Dates: start: 20110201
  2. MICARDIS [Concomitant]
     Dosage: UNK
     Dates: start: 20110201
  3. OMEPRAZOLE [Concomitant]
     Dosage: UNK
     Dates: start: 20010101

REACTIONS (1)
  - PALATAL OEDEMA [None]
